FAERS Safety Report 12749142 (Version 1)
Quarter: 2016Q3

REPORT INFORMATION
  Report Type: Spontaneous
  Country: GB (occurrence: GB)
  Receive Date: 20160915
  Receipt Date: 20160915
  Transmission Date: 20161109
  Serious: Yes (Hospitalization, Other)
  Sender: FDA-Public Use
  Company Number: GB-ELI_LILLY_AND_COMPANY-GB201609002592

PATIENT
  Age: 40 Year
  Sex: Female
  Weight: 76.2 kg

DRUGS (6)
  1. DIAZEPAM. [Concomitant]
     Active Substance: DIAZEPAM
     Dosage: UNK
  2. VENLAFAXINE [Concomitant]
     Active Substance: VENLAFAXINE HYDROCHLORIDE
     Dosage: UNK
  3. OLANZAPINE. [Suspect]
     Active Substance: OLANZAPINE
     Indication: ANXIETY
     Dosage: 10 MG, UNKNOWN
     Route: 048
     Dates: start: 200510, end: 201604
  4. OLANZAPINE. [Suspect]
     Active Substance: OLANZAPINE
     Indication: INSOMNIA
  5. PROPRANOLOL [Concomitant]
     Active Substance: PROPRANOLOL\PROPRANOLOL HYDROCHLORIDE
     Dosage: UNK
  6. MIRTAZAPINE. [Concomitant]
     Active Substance: MIRTAZAPINE
     Dosage: UNK

REACTIONS (9)
  - Depression [Recovered/Resolved]
  - Insomnia [Unknown]
  - Suicidal ideation [Recovered/Resolved with Sequelae]
  - Suicide attempt [Unknown]
  - Intentional overdose [Unknown]
  - Agoraphobia [Recovered/Resolved]
  - Tardive dyskinesia [Recovered/Resolved]
  - Anxiety [Recovered/Resolved]
  - Withdrawal syndrome [Unknown]

NARRATIVE: CASE EVENT DATE: 200510
